FAERS Safety Report 6485423-1 (Version None)
Quarter: 2009Q4

REPORT INFORMATION
  Report Type: 
  Country: None (occurrence: None)
  Receive Date: 20091209
  Receipt Date: 20090624
  Transmission Date: 20100525
  Serious: No
  Sender: FDA-Public Use
  Company Number: US-AMGEN-KDL353198

PATIENT
  Sex: Female

DRUGS (3)
  1. ENBREL [Suspect]
     Indication: RHEUMATOID ARTHRITIS
     Route: 058
     Dates: start: 20090610
  2. METHOTREXATE [Concomitant]
     Route: 048
     Dates: start: 20090610
  3. PLAQUENIL [Concomitant]
     Route: 048

REACTIONS (5)
  - ABDOMINAL DISCOMFORT [None]
  - NAUSEA [None]
  - NERVOUSNESS [None]
  - RESTLESSNESS [None]
  - TREMOR [None]
